FAERS Safety Report 6100320-9 (Version None)
Quarter: 2009Q1

REPORT INFORMATION
  Report Type: 
  Country: None (occurrence: None)
  Receive Date: 20090303
  Receipt Date: 20090216
  Transmission Date: 20090719
  Serious: Yes (Life-Threatening, Hospitalization, Other)
  Sender: FDA-Public Use
  Company Number: US-MERCK-0902USA02636

PATIENT
  Age: 72 Year
  Sex: Female

DRUGS (12)
  1. ZETIA [Suspect]
     Route: 048
     Dates: end: 20090101
  2. LETAIRIS [Suspect]
     Indication: PULMONARY ARTERIAL HYPERTENSION
     Route: 048
     Dates: start: 20080523, end: 20090201
  3. LETAIRIS [Suspect]
     Route: 065
     Dates: start: 20090210
  4. TRICOR [Suspect]
     Route: 048
     Dates: end: 20090101
  5. SPIRONOLACTONE [Concomitant]
     Route: 048
  6. SPIRIVA [Concomitant]
     Route: 065
  7. NEURONTIN [Concomitant]
     Route: 048
  8. AVAPRO [Concomitant]
     Route: 048
  9. PREMARIN [Concomitant]
     Route: 048
  10. CLONAZEPAM [Concomitant]
     Route: 048
  11. K-DUR [Concomitant]
     Route: 048
  12. DURAGESIC-100 [Concomitant]
     Route: 065

REACTIONS (3)
  - HEPATIC FAILURE [None]
  - LIVER FUNCTION TEST ABNORMAL [None]
  - URINARY TRACT INFECTION [None]
